FAERS Safety Report 7307140-8 (Version None)
Quarter: 2011Q1

REPORT INFORMATION
  Report Type: 
  Country: None (occurrence: None)
  Receive Date: 20110223
  Receipt Date: 20110217
  Transmission Date: 20110831
  Serious: No
  Sender: FDA-Public Use
  Company Number: US-BIOGENIDEC-2011BI006392

PATIENT
  Age: 36 Year
  Sex: Male

DRUGS (1)
  1. TYSABRI [Suspect]
     Indication: MULTIPLE SCLEROSIS
     Route: 042
     Dates: start: 20110215

REACTIONS (9)
  - PHOTOPSIA [None]
  - HEADACHE [None]
  - PAIN IN EXTREMITY [None]
  - NAUSEA [None]
  - DIZZINESS [None]
  - BACK PAIN [None]
  - FATIGUE [None]
  - EYE PAIN [None]
  - CHEST DISCOMFORT [None]
